FAERS Safety Report 4366752-4 (Version None)
Quarter: 2004Q2

REPORT INFORMATION
  Report Type: 
  Country: None (occurrence: None)
  Receive Date: 20040524
  Receipt Date: 20040513
  Transmission Date: 20050107
  Serious: Yes (Other)
  Sender: FDA-Public Use
  Company Number: 2004032747

PATIENT
  Sex: Female

DRUGS (3)
  1. ZITHROMAX [Suspect]
     Indication: ILL-DEFINED DISORDER
     Dosage: ORAL
     Route: 048
     Dates: start: 20040511, end: 20040512
  2. CLOFEDANOL HYDROCHLORIDE (CLOFEDANOL HYDROCHLORIDE) [Suspect]
     Indication: ILL-DEFINED DISORDER
  3. PRANOPROFEN (PRANOPROFEN) [Suspect]
     Indication: ILL-DEFINED DISORDER

REACTIONS (1)
  - SHOCK [None]
